FAERS Safety Report 11322547 (Version 1)
Quarter: 2015Q3

REPORT INFORMATION
  Report Type: Spontaneous
  Country: IN (occurrence: IN)
  Receive Date: 20150730
  Receipt Date: 20150730
  Transmission Date: 20151125
  Serious: Yes (Other)
  Sender: FDA-Public Use
  Company Number: IN-COREPHARMA LLC-2015COR00150

PATIENT

DRUGS (3)
  1. PHENYTOIN. [Suspect]
     Active Substance: PHENYTOIN
     Indication: STATUS EPILEPTICUS
     Dosage: 50 MG, CONTINUOUS/MIN
     Route: 042
  2. PHENYTOIN. [Suspect]
     Active Substance: PHENYTOIN
     Dosage: 1.67 MG/KG, 3X/DAY
     Route: 042
  3. LORAZEPAM. [Concomitant]
     Active Substance: LORAZEPAM
     Indication: STATUS EPILEPTICUS
     Dosage: 0.1 UNK, UNK
     Route: 042

REACTIONS (3)
  - Pneumonia aspiration [Unknown]
  - Respiratory failure [Unknown]
  - Hypotension [Unknown]
